FAERS Safety Report 5877363-3 (Version None)
Quarter: 2008Q3

REPORT INFORMATION
  Report Type: 
  Country: None (occurrence: None)
  Receive Date: 20080908
  Receipt Date: 20080822
  Transmission Date: 20090109
  Serious: Yes (Hospitalization)
  Sender: FDA-Public Use
  Company Number: 2008BI020522

PATIENT
  Age: 38 Year
  Sex: Female
  Weight: 50 kg

DRUGS (1)
  1. TYSABRI [Suspect]
     Indication: RELAPSING-REMITTING MULTIPLE SCLEROSIS
     Dosage: 300 MG; QM; IV
     Route: 042
     Dates: start: 20070801, end: 20080703

REACTIONS (12)
  - ABDOMINAL PAIN [None]
  - DIARRHOEA [None]
  - EOSINOPHIL COUNT INCREASED [None]
  - GAIT DISTURBANCE [None]
  - GENERAL PHYSICAL HEALTH DETERIORATION [None]
  - HYPOAESTHESIA [None]
  - LYMPHOCYTE COUNT INCREASED [None]
  - MONOCYTE COUNT INCREASED [None]
  - NAUSEA [None]
  - NEUTROPHIL COUNT INCREASED [None]
  - SERUM FERRITIN DECREASED [None]
  - VOMITING [None]
